FAERS Safety Report 4791730-0 (Version None)
Quarter: 2005Q4

REPORT INFORMATION
  Report Type: 
  Country: None (occurrence: None)
  Receive Date: 20051005
  Receipt Date: 20050923
  Transmission Date: 20060501
  Serious: Yes (Hospitalization)
  Sender: FDA-Public Use
  Company Number: KII-2005-0018730

PATIENT
  Age: 20 Month
  Sex: Male

DRUGS (1)
  1. BUPRENORPHINE (SIMILAR TO IND 50,273)(BUPRENORPHINE) [Suspect]
     Indication: ACCIDENTAL EXPOSURE
     Dosage: SEE TEXT, ORAL
     Route: 048
     Dates: start: 20050903

REACTIONS (3)
  - ACCIDENTAL DRUG INTAKE BY CHILD [None]
  - DEPRESSED LEVEL OF CONSCIOUSNESS [None]
  - MIOSIS [None]
